FAERS Safety Report 14951589 (Version 1)
Quarter: 2018Q2

REPORT INFORMATION
  Report Type: Spontaneous
  Country: US (occurrence: US)
  Receive Date: 20180509
  Receipt Date: 20180509
  Transmission Date: 20180711
  Serious: Yes (Hospitalization)
  Sender: FDA-Public Use
  Company Number: None

PATIENT
  Age: 62 Year
  Sex: Female

DRUGS (5)
  1. TRAMADOL HCL TAB 50MG [Concomitant]
     Dates: start: 20171117, end: 20180508
  2. IBRANCE [Suspect]
     Active Substance: PALBOCICLIB
     Indication: BREAST CANCER
     Route: 048
     Dates: start: 20171120
  3. LOSARTAN POT TAB 100MG [Concomitant]
     Dates: start: 20171117
  4. ENSURE HP LIQ CHOCOLAT [Concomitant]
     Dates: start: 20171117
  5. LETROZOLE. [Suspect]
     Active Substance: LETROZOLE
     Indication: BREAST CANCER

REACTIONS (3)
  - Pulmonary oedema [None]
  - Stress [None]
  - Dyspnoea [None]

NARRATIVE: CASE EVENT DATE: 20180503
